FAERS Safety Report 6964085-0 (Version None)
Quarter: 2010Q3

REPORT INFORMATION
  Report Type: 
  Country: None (occurrence: None)
  Receive Date: 20100831
  Receipt Date: 20100819
  Transmission Date: 20110219
  Serious: Yes (Other)
  Sender: FDA-Public Use
  Company Number: 0211242

PATIENT
  Age: 45 Year
  Sex: Male

DRUGS (4)
  1. TACHOSIL [Suspect]
     Indication: HAEMOSTASIS
     Dosage: 1 SPONGE OF 4.8 X 4.8 CM2; TOPICAL
     Route: 061
     Dates: start: 20100218, end: 20100218
  2. LASIX [Concomitant]
  3. LOVENOX [Concomitant]
  4. MORPHINE [Concomitant]

REACTIONS (2)
  - DRUG INEFFECTIVE [None]
  - HAEMORRHAGE [None]
